FAERS Safety Report 7605399-0 (Version None)
Quarter: 2011Q3

REPORT INFORMATION
  Report Type: 
  Country: None (occurrence: None)
  Receive Date: 20110713
  Receipt Date: 20110628
  Transmission Date: 20111222
  Serious: Yes (Hospitalization, Other)
  Sender: FDA-Public Use
  Company Number: US-BAYER-201034377NA

PATIENT
  Age: 39 Year
  Sex: Female
  Weight: 74.83 kg

DRUGS (5)
  1. YASMIN [Suspect]
     Indication: ENDOMETRIOSIS
     Dosage: UNK
     Route: 048
     Dates: start: 20030701, end: 20030901
  2. VENTOLIN HFA [Concomitant]
     Route: 045
  3. XANAX [Concomitant]
     Dosage: UNK UNK, PRN
     Route: 048
     Dates: start: 20030101
  4. NEXIUM [Concomitant]
     Route: 048
  5. DIOVAN [Concomitant]
     Dosage: 160 MG, QD
     Route: 048

REACTIONS (5)
  - PAIN [None]
  - NERVE INJURY [None]
  - SWELLING [None]
  - DEEP VEIN THROMBOSIS [None]
  - PULMONARY EMBOLISM [None]
